FAERS Safety Report 17823009 (Version 1)
Quarter: 2020Q2

REPORT INFORMATION
  Report Type: Spontaneous
  Country: US (occurrence: US)
  Receive Date: 20200523
  Receipt Date: 20200523
  Transmission Date: 20200714
  Serious: Yes (Other)
  Sender: FDA-Public Use
  Company Number: None

PATIENT
  Age: 39 Year
  Sex: Male
  Weight: 79.2 kg

DRUGS (4)
  1. ATRACURIUM [Concomitant]
     Active Substance: ATRACURIUM
  2. REMDESIVIR. [Suspect]
     Active Substance: REMDESIVIR
     Indication: COVID-19
     Route: 042
     Dates: start: 20200513, end: 20200522
  3. MIDAZOLAM. [Concomitant]
     Active Substance: MIDAZOLAM
  4. FUROSEMIDE. [Concomitant]
     Active Substance: FUROSEMIDE

REACTIONS (2)
  - Malaise [None]
  - Renal impairment [None]

NARRATIVE: CASE EVENT DATE: 20200518
